FAERS Safety Report 15350877 (Version 1)
Quarter: 2018Q3

REPORT INFORMATION
  Report Type: Spontaneous
  Country: CA (occurrence: CA)
  Receive Date: 20180905
  Receipt Date: 20180905
  Transmission Date: 20181010
  Serious: Yes (Other)
  Sender: FDA-Public Use
  Company Number: CA-ROCHE-2176043

PATIENT
  Sex: Male
  Weight: 82.63 kg

DRUGS (1)
  1. AVASTIN [Suspect]
     Active Substance: BEVACIZUMAB
     Indication: MACULAR DEGENERATION
     Route: 031

REACTIONS (5)
  - Vitreous floaters [Unknown]
  - Visual impairment [Unknown]
  - Vision blurred [Unknown]
  - Eye disorder [Unknown]
  - Off label use [Unknown]
